FAERS Safety Report 21877181 (Version 1)
Quarter: 2023Q1

REPORT INFORMATION
  Report Type: Spontaneous
  Country: US (occurrence: None)
  Receive Date: 20230116
  Receipt Date: 20230116
  Transmission Date: 20230417
  Serious: Yes (Death)
  Sender: FDA-Public Use
  Company Number: None

PATIENT
  Age: 67 Year
  Sex: Female
  Weight: 64.41 kg

DRUGS (16)
  1. VERZENIO [Suspect]
     Active Substance: ABEMACICLIB
     Indication: Breast cancer female
     Dosage: FREQUENCY: TWICE A DAY
     Route: 048
     Dates: start: 20221105
  2. ATORVASTATIN [Concomitant]
  3. CLONAZEPAM [Concomitant]
  4. ELIQUIS [Concomitant]
  5. FAMOTIDINE [Concomitant]
  6. GABAPENTIN [Concomitant]
  7. LETROZOLE [Concomitant]
  8. LIDOCAINE [Concomitant]
  9. MIRALAX [Concomitant]
  10. MOVANTIK [Concomitant]
     Active Substance: NALOXEGOL OXALATE
  11. OLANZAPINE [Concomitant]
  12. OXYCODONE [Concomitant]
  13. PROCHLORPERAZINE [Concomitant]
  14. SENNOSIDES [Concomitant]
  15. ZOFRAN [Concomitant]
  16. ACETAMINOPHEN [Concomitant]
     Active Substance: ACETAMINOPHEN

REACTIONS (1)
  - Death [None]
